FAERS Safety Report 4596015-3 (Version None)
Quarter: 2005Q1

REPORT INFORMATION
  Report Type: 
  Country: None (occurrence: None)
  Receive Date: 20050224
  Receipt Date: 20050209
  Transmission Date: 20050727
  Serious: Yes (Hospitalization)
  Sender: FDA-Public Use
  Company Number: EWC050242700

PATIENT
  Age: 58 Year
  Sex: Female

DRUGS (8)
  1. HUMULIN 70/30 [Suspect]
     Indication: DIABETES MELLITUS
     Dosage: 76 IU/2 DAY
     Dates: start: 20030201, end: 20050204
  2. HUMULIN R [Suspect]
     Indication: DIABETES MELLITUS
     Dosage: 16 IU/L IN THE MORNING
     Dates: start: 20050121, end: 20050204
  3. GLIMEPIRIDE [Concomitant]
  4. REZULT (ROSIGILITAZONE) [Concomitant]
  5. GLUCOBAY [Concomitant]
  6. RAMIPRIL [Concomitant]
  7. LORAM (LORAZEPAM) [Concomitant]
  8. METFORMIN [Concomitant]

REACTIONS (4)
  - INJECTION SITE ABSCESS [None]
  - INJECTION SITE DISCOLOURATION [None]
  - INJECTION SITE PAIN [None]
  - INJECTION SITE SWELLING [None]
